FAERS Safety Report 9199224 (Version 3)
Quarter: 2013Q3

REPORT INFORMATION
  Report Type: Spontaneous
  Country: US (occurrence: US)
  Receive Date: 20130329
  Receipt Date: 20130731
  Transmission Date: 20140515
  Serious: Yes (Hospitalization, Disabling, Other)
  Sender: FDA-Public Use
  Company Number: US-009507513-1303USA012842

PATIENT
  Sex: Female
  Weight: 81.63 kg

DRUGS (2)
  1. NUVARING [Suspect]
     Indication: CONTRACEPTION
     Dosage: UNK
     Route: 067
     Dates: start: 20060228, end: 20070519
  2. NUVARING [Suspect]
     Dosage: UNK
     Route: 067
     Dates: start: 201004, end: 201005

REACTIONS (6)
  - Abortion spontaneous [Unknown]
  - Pulmonary embolism [Unknown]
  - Animal bite [Unknown]
  - Maternal exposure before pregnancy [Unknown]
  - Emotional disorder [Unknown]
  - Drug dependence [Unknown]
